FAERS Safety Report 11376746 (Version 2)
Quarter: 2015Q3

REPORT INFORMATION
  Report Type: Spontaneous
  Country: BR (occurrence: BR)
  Receive Date: 20150813
  Receipt Date: 20150828
  Transmission Date: 20151125
  Serious: Yes (Other)
  Sender: FDA-Public Use
  Company Number: CHPA2015BR009389

PATIENT
  Sex: Male
  Weight: 77 kg

DRUGS (3)
  1. OTRIVINA [Suspect]
     Active Substance: XYLOMETAZOLINE
     Dosage: ADMINISTERING IT ALL THE TIME LATELY
     Route: 045
  2. OTRIVINA [Suspect]
     Active Substance: XYLOMETAZOLINE
     Indication: DYSPNOEA
     Dosage: UNK, PRN
     Route: 045
     Dates: start: 2012
  3. ALENIA                             /01538101/ [Concomitant]
     Active Substance: BUDESONIDE\FORMOTEROL FUMARATE
     Indication: DYSPNOEA
     Dosage: 1 DF, QD
     Route: 055

REACTIONS (3)
  - Off label use [Unknown]
  - Pneumonia [Recovered/Resolved]
  - Dyspnoea [Not Recovered/Not Resolved]
